FAERS Safety Report 4761114-X (Version None)
Quarter: 2005Q3

REPORT INFORMATION
  Report Type: 
  Country: None (occurrence: None)
  Receive Date: 20050901
  Receipt Date: 20050408
  Transmission Date: 20060218
  Serious: No
  Sender: FDA-Public Use
  Company Number: 2005FR-00240

PATIENT
  Sex: Male

DRUGS (1)
  1. IBUPROFEN [Suspect]
     Indication: OSTEOARTHRITIS
     Dosage: 200 MG ORAL
     Route: 048

REACTIONS (3)
  - ANAPHYLACTIC REACTION [None]
  - FALL [None]
  - SELF-MEDICATION [None]
